FAERS Safety Report 6848026-2 (Version None)
Quarter: 2010Q3

REPORT INFORMATION
  Report Type: 
  Country: None (occurrence: None)
  Receive Date: 20100716
  Receipt Date: 20100709
  Transmission Date: 20110219
  Serious: Yes (Hospitalization)
  Sender: FDA-Public Use
  Company Number: DE-ALLERGAN-1007325US

PATIENT
  Age: 71 Year
  Sex: Male

DRUGS (1)
  1. EFFLUMIDEX [Suspect]
     Indication: PRODUCT USED FOR UNKNOWN INDICATION
     Dosage: UNK
     Route: 047
     Dates: start: 20100512

REACTIONS (4)
  - NAUSEA [None]
  - PHOTOPHOBIA [None]
  - VERTIGO [None]
  - VOMITING [None]
